FAERS Safety Report 6779653-9 (Version None)
Quarter: 2010Q2

REPORT INFORMATION
  Report Type: 
  Country: None (occurrence: None)
  Receive Date: 20100618
  Receipt Date: 20100608
  Transmission Date: 20101027
  Serious: Yes (Hospitalization)
  Sender: FDA-Public Use
  Company Number: B0661200A

PATIENT
  Sex: Female
  Weight: 75 kg

DRUGS (3)
  1. LAPATINIB [Suspect]
     Indication: BREAST CANCER
     Dosage: 1000MG PER DAY
     Route: 048
     Dates: start: 20100415
  2. EPIRUBICIN [Suspect]
     Indication: BREAST CANCER
     Dosage: 161MG EVERY 3 WEEKS
     Route: 042
     Dates: start: 20100415
  3. CYCLOPHOSPHAMIDE [Suspect]
     Indication: BREAST CANCER
     Dosage: 1080MG EVERY 3 WEEKS
     Route: 042
     Dates: start: 20100415

REACTIONS (2)
  - FEBRILE NEUTROPENIA [None]
  - WHITE BLOOD CELL COUNT DECREASED [None]
